FAERS Safety Report 10253735 (Version 1)
Quarter: 2014Q2

REPORT INFORMATION
  Report Type: Spontaneous
  Country: US (occurrence: US)
  Receive Date: 20140623
  Receipt Date: 20140623
  Transmission Date: 20141212
  Serious: No
  Sender: FDA-Public Use
  Company Number: US-009507513-1405USA003271

PATIENT
  Age: 6 Year
  Sex: Male
  Weight: 18.14 kg

DRUGS (3)
  1. CLARITIN ORAL SOLUTION [Suspect]
     Indication: SEASONAL ALLERGY
     Dosage: 10 MG, QD
     Route: 048
     Dates: start: 201404
  2. CLARITIN ORAL SOLUTION [Suspect]
     Dosage: 10 MG, QD
     Route: 048
     Dates: start: 20140427
  3. CLARITIN CHEWABLE TABLETS [Suspect]
     Indication: SEASONAL ALLERGY
     Dosage: 10 MG, UNKNOWN
     Route: 048
     Dates: start: 20140427

REACTIONS (1)
  - Overdose [Unknown]
